FAERS Safety Report 26108020 (Version 1)
Quarter: 2025Q4

REPORT INFORMATION
  Report Type: Spontaneous
  Country: US (occurrence: None)
  Receive Date: 20251127
  Receipt Date: 20251127
  Transmission Date: 20260117
  Serious: Yes (Death, Hospitalization)
  Sender: FDA-CTU
  Company Number: None

PATIENT
  Age: 69 Year
  Sex: Male
  Weight: 88.3 kg

DRUGS (2)
  1. NIVOLUMAB [Suspect]
     Active Substance: NIVOLUMAB
     Dates: start: 20250903
  2. CABOZANTINIB S-MALATE [Suspect]
     Active Substance: CABOZANTINIB S-MALATE
     Dates: start: 20250902

REACTIONS (15)
  - Anaemia [None]
  - Faeces discoloured [None]
  - Thrombocytopenia [None]
  - Asthenia [None]
  - Lethargy [None]
  - Decreased appetite [None]
  - Blood urea increased [None]
  - Blood creatine increased [None]
  - Pseudocirrhosis [None]
  - Deep vein thrombosis [None]
  - Metastases to lung [None]
  - Metastases to liver [None]
  - Metastases to bone [None]
  - Metastases to lymph nodes [None]
  - Generalised oedema [None]

NARRATIVE: CASE EVENT DATE: 20251108
